FAERS Safety Report 4732703-3 (Version None)
Quarter: 2005Q3

REPORT INFORMATION
  Report Type: 
  Country: None (occurrence: None)
  Receive Date: 20050803
  Receipt Date: 20050725
  Transmission Date: 20060218
  Serious: Yes (Disabling)
  Sender: FDA-Public Use
  Company Number: PHFR2005GB02553

PATIENT
  Age: 33 Year

DRUGS (2)
  1. FEXOFENADINE HCL [Concomitant]
     Indication: SEASONAL ALLERGY
     Dosage: 120MG/DAY
     Route: 048
  2. LAMISIL [Suspect]
     Indication: NAIL TINEA
     Dosage: 250 MG, QD
     Route: 048
     Dates: start: 20050516, end: 20050701

REACTIONS (2)
  - AGEUSIA [None]
  - ANOSMIA [None]
